FAERS Safety Report 15699167 (Version 1)
Quarter: 2018Q4

REPORT INFORMATION
  Report Type: Spontaneous
  Country: US (occurrence: US)
  Receive Date: 20181207
  Receipt Date: 20181207
  Transmission Date: 20190205
  Serious: Yes (Other)
  Sender: FDA-Public Use
  Company Number: None

PATIENT
  Age: 53 Year
  Sex: Female
  Weight: 76.5 kg

DRUGS (1)
  1. PROGESTERONE 100 MG [Suspect]
     Active Substance: PROGESTERONE
     Indication: MENOPAUSAL SYMPTOMS
     Route: 048

REACTIONS (6)
  - Agitation [None]
  - Product colour issue [None]
  - Product substitution issue [None]
  - Psychomotor hyperactivity [None]
  - Product coating issue [None]
  - Insomnia [None]

NARRATIVE: CASE EVENT DATE: 20180703
